FAERS Safety Report 13545315 (Version 1)
Quarter: 2017Q2

REPORT INFORMATION
  Report Type: Spontaneous
  Country: US (occurrence: US)
  Receive Date: 20170515
  Receipt Date: 20170515
  Transmission Date: 20170830
  Serious: No
  Sender: FDA-Public Use
  Company Number: US-ASTRAZENECA-2017SE47822

PATIENT
  Age: 83 Year
  Sex: Female

DRUGS (3)
  1. CRESTOR [Suspect]
     Active Substance: ROSUVASTATIN CALCIUM
     Indication: BLOOD CHOLESTEROL
     Route: 048
  2. MYRBETRIQ [Concomitant]
     Active Substance: MIRABEGRON
     Indication: PRODUCT USED FOR UNKNOWN INDICATION
     Dates: start: 20170330
  3. YEAST [Concomitant]
     Active Substance: YEAST

REACTIONS (3)
  - Limb discomfort [Unknown]
  - Musculoskeletal discomfort [Unknown]
  - Viral upper respiratory tract infection [Unknown]

NARRATIVE: CASE EVENT DATE: 201704
